FAERS Safety Report 4281406-0 (Version None)
Quarter: 2004Q1

REPORT INFORMATION
  Report Type: 
  Country: None (occurrence: None)
  Receive Date: 20040109
  Receipt Date: 20030926
  Transmission Date: 20041129
  Serious: No
  Sender: FDA-Public Use
  Company Number: US050364

PATIENT
  Sex: Male

DRUGS (1)
  1. KINERET [Suspect]
     Indication: REITER'S SYNDROME
     Dosage: 100 MG, DAILY, SC
     Route: 058
     Dates: start: 20030925

REACTIONS (1)
  - INJECTION SITE HAEMORRHAGE [None]
